FAERS Safety Report 11635479 (Version 4)
Quarter: 2016Q1

REPORT INFORMATION
  Report Type: Spontaneous
  Country: US (occurrence: US)
  Receive Date: 20151016
  Receipt Date: 20160201
  Transmission Date: 20160525
  Serious: No
  Sender: FDA-Public Use
  Company Number: US-009507513-1510USA006829

PATIENT
  Age: 27 Year
  Sex: Female

DRUGS (1)
  1. NEXPLANON [Suspect]
     Active Substance: ETONOGESTREL
     Indication: CONTRACEPTION
     Dosage: 68 MG, ONE ROD EVERY THREE YEARS
     Route: 059
     Dates: start: 2013

REACTIONS (5)
  - No adverse event [Unknown]
  - Complication of device removal [Unknown]
  - Complication associated with device [Recovered/Resolved]
  - Device difficult to use [Recovered/Resolved]
  - Device deployment issue [Unknown]

NARRATIVE: CASE EVENT DATE: 20151008
